FAERS Safety Report 4602927-4 (Version None)
Quarter: 2005Q1

REPORT INFORMATION
  Report Type: 
  Country: None (occurrence: None)
  Receive Date: 20050307
  Receipt Date: 20050228
  Transmission Date: 20050727
  Serious: Yes (Death)
  Sender: FDA-Public Use
  Company Number: 2005AP01437

PATIENT
  Age: 69 Year
  Sex: Male

DRUGS (1)
  1. IRESSA [Suspect]
     Indication: NEOPLASM MALIGNANT
     Dosage: 250 MG DAILY PO
     Route: 048
     Dates: end: 20021126

REACTIONS (2)
  - DERMATITIS ACNEIFORM [None]
  - XERODERMA [None]
